FAERS Safety Report 11744045 (Version 1)
Quarter: 2015Q4

REPORT INFORMATION
  Report Type: Spontaneous
  Country: US (occurrence: US)
  Receive Date: 20151116
  Receipt Date: 20151116
  Transmission Date: 20160304
  Serious: Yes (Other)
  Sender: FDA-Public Use
  Company Number: US-CELGENEUS-USA-2015112001

PATIENT
  Sex: Female
  Weight: 89.44 kg

DRUGS (1)
  1. REVLIMID [Suspect]
     Active Substance: LENALIDOMIDE
     Indication: PLASMA CELL MYELOMA
     Dosage: 18.75 MILLIGRAM
     Route: 048
     Dates: start: 20141110

REACTIONS (3)
  - Eyelid cyst [Recovering/Resolving]
  - Pain in extremity [Recovered/Resolved]
  - Nausea [Recovered/Resolved]
